FAERS Safety Report 9536355 (Version 1)
Quarter: 2013Q2

REPORT INFORMATION
  Report Type: Spontaneous
  Country: US (occurrence: None)
  Receive Date: 20130517
  Receipt Date: 20130517
  Transmission Date: 20140414
  Serious: Yes (Other)
  Sender: FDA-Public Use
  Company Number: 1000041929

PATIENT
  Age: 64 Year
  Sex: Male

DRUGS (4)
  1. VIIBRYD [Suspect]
     Indication: DEPRESSION
     Route: 048
     Dates: start: 201211, end: 2012
  2. VIIBRYD [Suspect]
     Indication: DEPRESSION
     Route: 048
     Dates: start: 20130119, end: 20130120
  3. LORAZEPAM (LORAZEPAM) (LORAZEPAM) [Concomitant]
  4. METOPOLOL (METOPROLOL) (METOPROLOL) [Concomitant]

REACTIONS (4)
  - Malaise [None]
  - Depression [None]
  - Nausea [None]
  - Musculoskeletal discomfort [None]
